FAERS Safety Report 7137909-4 (Version None)
Quarter: 2010Q4

REPORT INFORMATION
  Report Type: 
  Country: None (occurrence: None)
  Receive Date: 20101206
  Receipt Date: 20101129
  Transmission Date: 20110411
  Serious: Yes (Other)
  Sender: FDA-Public Use
  Company Number: US-SANOFI-AVENTIS-2010SA070025

PATIENT
  Age: 68 Year
  Sex: Female
  Weight: 93 kg

DRUGS (25)
  1. LANTUS [Suspect]
     Indication: TYPE 2 DIABETES MELLITUS
     Dosage: DOSE:25 UNIT(S)
     Route: 058
  2. LANTUS [Suspect]
     Dosage: DOSE:38 UNIT(S)
     Route: 058
  3. SOLOSTAR [Suspect]
     Indication: TYPE 2 DIABETES MELLITUS
  4. ALL OTHER THERAPEUTIC PRODUCTS [Concomitant]
  5. EYE DROPS [Concomitant]
  6. COUMADIN [Concomitant]
     Dosage: 5MG FOR 2 DAYS THEN 2.5MG FOR NEXT 3 DAYS
     Route: 048
  7. NOVOLOG [Concomitant]
     Dosage: WITH MEALS, SLIDING SCALE
     Route: 058
  8. LEVOTHYROXINE SODIUM [Concomitant]
     Route: 048
  9. CRESTOR [Concomitant]
     Route: 048
  10. POTASSIUM CHLORIDE [Concomitant]
     Route: 048
  11. ASPIRIN [Concomitant]
     Route: 048
  12. VITAMIN D3 [Concomitant]
     Dosage: DOSE:1000 UNIT(S)
     Route: 048
  13. BETAGAN [Concomitant]
     Route: 047
  14. LASIX [Concomitant]
     Route: 048
  15. XANAX [Concomitant]
     Route: 048
  16. MAGNESIUM OXIDE [Concomitant]
     Route: 048
  17. NEXIUM [Concomitant]
     Route: 048
  18. IRON [Concomitant]
     Route: 048
  19. ALPHAGAN [Concomitant]
     Route: 047
  20. LISINOPRIL [Concomitant]
     Route: 048
  21. TRUSOPT [Concomitant]
     Route: 047
  22. COZAAR [Concomitant]
     Route: 048
  23. COREG [Concomitant]
     Route: 048
  24. TRAVATAN [Concomitant]
     Dosage: LEFT EYE
     Route: 047
  25. MECLIZINE [Concomitant]
     Route: 048

REACTIONS (7)
  - BLOOD GLUCOSE INCREASED [None]
  - DIZZINESS [None]
  - EYE DISORDER [None]
  - GLAUCOMA [None]
  - LIQUID PRODUCT PHYSICAL ISSUE [None]
  - RETINAL INJURY [None]
  - VISUAL ACUITY REDUCED [None]
